FAERS Safety Report 5142097-X (Version None)
Quarter: 2006Q4

REPORT INFORMATION
  Report Type: 
  Country: None (occurrence: None)
  Receive Date: 20061027
  Receipt Date: 20061014
  Transmission Date: 20070319
  Serious: Yes (Hospitalization)
  Sender: FDA-Public Use
  Company Number: 1-14093222

PATIENT
  Age: 79 Year
  Sex: Female

DRUGS (8)
  1. FOLIC ACID [Suspect]
     Dosage: 1MG ONCE DAILY, ORAL
     Route: 048
  2. SULFASALAZINE [Concomitant]
  3. KLOR-CON [Concomitant]
  4. ATENOLOL [Concomitant]
  5. DICYCLOMINE [Concomitant]
  6. IRON (OTC) [Concomitant]
  7. CALCIUM WITH VITAMIN D AND IRON (OTC) [Concomitant]
  8. MULTI-VITAMIN [Concomitant]

REACTIONS (7)
  - ANOREXIA [None]
  - ASTHENIA [None]
  - COELIAC DISEASE [None]
  - ECCHYMOSIS [None]
  - GALLBLADDER DISORDER [None]
  - HAEMOGLOBIN DECREASED [None]
  - NAUSEA [None]
